FAERS Safety Report 18187381 (Version 1)
Quarter: 2020Q3

REPORT INFORMATION
  Report Type: Spontaneous
  Country: FR (occurrence: FR)
  Receive Date: 20200824
  Receipt Date: 20200824
  Transmission Date: 20201103
  Serious: Yes (Life-Threatening)
  Sender: FDA-Public Use
  Company Number: FR-PFIZER INC-2020325453

PATIENT
  Age: 72 Year
  Sex: Female
  Weight: 85 kg

DRUGS (4)
  1. SERTRALINE HCL [Suspect]
     Active Substance: SERTRALINE HYDROCHLORIDE
     Dosage: 700 MG
     Route: 048
     Dates: start: 20200610, end: 20200610
  2. TRAMADOL HCL [Suspect]
     Active Substance: TRAMADOL HYDROCHLORIDE
     Dosage: 500 MG
     Route: 048
     Dates: start: 20200610, end: 20200610
  3. THERALENE [Suspect]
     Active Substance: TRIMEPRAZINE
     Dosage: 1200 MG (1 BOTTLE OF 30ML OR 1200 MG)
     Route: 048
     Dates: start: 20200610, end: 20200610
  4. ZOPICLONE [Suspect]
     Active Substance: ZOPICLONE
     Dosage: 525 MG
     Route: 048
     Dates: start: 20200610, end: 20200610

REACTIONS (4)
  - Altered state of consciousness [Recovered/Resolved]
  - Toxicity to various agents [Recovered/Resolved]
  - Prescribed overdose [Unknown]
  - Bradycardia [Recovered/Resolved]

NARRATIVE: CASE EVENT DATE: 20200610
